FAERS Safety Report 14789498 (Version 1)
Quarter: 2018Q2

REPORT INFORMATION
  Report Type: Spontaneous
  Country: US (occurrence: US)
  Receive Date: 20180423
  Receipt Date: 20180423
  Transmission Date: 20180711
  Serious: No
  Sender: FDA-Public Use
  Company Number: US-TEVA-824769ACC

PATIENT

DRUGS (1)
  1. ZOLPIDEM [Suspect]
     Active Substance: ZOLPIDEM\ZOLPIDEM TARTRATE
     Indication: SLEEP DISORDER
     Dosage: BEGAN TAKING THESE PILLS A COUPLE OF YEARS AGO, USING ON AND OFF
     Route: 065
     Dates: start: 2017, end: 2017

REACTIONS (12)
  - Dizziness [Unknown]
  - Abdominal discomfort [Unknown]
  - Pain [Unknown]
  - Feeling abnormal [Unknown]
  - Migraine [Unknown]
  - Restless legs syndrome [Unknown]
  - Motor dysfunction [Unknown]
  - Drug ineffective [Unknown]
  - Malaise [Unknown]
  - Nausea [Unknown]
  - Headache [Unknown]
  - Insomnia [Unknown]

NARRATIVE: CASE EVENT DATE: 2017
